FAERS Safety Report 15306846 (Version 1)
Quarter: 2018Q3

REPORT INFORMATION
  Report Type: Spontaneous
  Country: US (occurrence: US)
  Receive Date: 20180810
  Receipt Date: 20180810
  Transmission Date: 20181010
  Serious: No
  Sender: FDA-Public Use
  Company Number: None

PATIENT
  Sex: Female
  Weight: 55.34 kg

DRUGS (6)
  1. METHOTREXATE. [Suspect]
     Active Substance: METHOTREXATE
     Indication: SENILE OSTEOPOROSIS
  2. ENBREL [Suspect]
     Active Substance: ETANERCEPT
     Indication: SENILE OSTEOPOROSIS
     Route: 058
     Dates: start: 201705
  3. METHOTREXATE. [Suspect]
     Active Substance: METHOTREXATE
     Indication: PATHOLOGICAL FRACTURE
  4. ENBREL [Suspect]
     Active Substance: ETANERCEPT
     Indication: PATHOLOGICAL FRACTURE
     Route: 058
     Dates: start: 201705
  5. ENBREL [Suspect]
     Active Substance: ETANERCEPT
     Indication: RHEUMATOID ARTHRITIS
     Route: 058
     Dates: start: 201705
  6. METHOTREXATE. [Suspect]
     Active Substance: METHOTREXATE
     Indication: RHEUMATOID ARTHRITIS

REACTIONS (2)
  - Full blood count decreased [None]
  - Anaemia [None]
